FAERS Safety Report 4749773-9 (Version None)
Quarter: 2005Q3

REPORT INFORMATION
  Report Type: 
  Country: None (occurrence: None)
  Receive Date: 20050822
  Receipt Date: 20050714
  Transmission Date: 20060218
  Serious: Yes (Other)
  Sender: FDA-Public Use
  Company Number: US-BRISTOL-MYERS SQUIBB COMPANY-13038112

PATIENT
  Age: 63 Year
  Sex: Female
  Weight: 100 kg

DRUGS (6)
  1. ERBITUX [Suspect]
     Indication: COLON CANCER METASTATIC
     Dosage: LOADING DOSE, 400 MG/M2 (800 MG).  INFUSION D/C.
     Route: 042
     Dates: start: 20050610, end: 20050610
  2. BENADRYL [Concomitant]
     Route: 041
     Dates: start: 20050610, end: 20050610
  3. ZESTRIL [Concomitant]
  4. HYDROCHLOROTHIAZIDE [Concomitant]
  5. POTASSIUM CHLORIDE [Concomitant]
  6. COUMADIN [Concomitant]
     Dosage: 1 MG AS DIRECTED

REACTIONS (8)
  - CHEST PAIN [None]
  - COUGH [None]
  - ERYTHEMA [None]
  - OCULAR HYPERAEMIA [None]
  - PHARYNGOLARYNGEAL PAIN [None]
  - PRURITUS GENERALISED [None]
  - RESPIRATORY DISORDER [None]
  - URTICARIA [None]
